FAERS Safety Report 8794899 (Version 1)
Quarter: 2012Q4

REPORT INFORMATION
  Report Type: 
  Country: RU (occurrence: RU)
  Receive Date: 20120918
  Receipt Date: 20120918
  Transmission Date: 20130627
  Serious: Yes (Other)
  Sender: FDA-Public Use
  Company Number: RU-ROCHE-1130907

PATIENT
  Sex: Female

DRUGS (5)
  1. HERCEPTIN [Suspect]
     Indication: METASTASES TO LUNG
     Route: 065
     Dates: start: 20111016
  2. HERCEPTIN [Suspect]
     Indication: METASTASES TO BONE
  3. XELODA [Suspect]
     Indication: PRODUCT USED FOR UNKNOWN INDICATION
     Route: 065
     Dates: start: 201204
  4. ZOMETA [Concomitant]
     Route: 065
     Dates: start: 201207
  5. VINORELBINE [Concomitant]

REACTIONS (2)
  - Drug ineffective [Unknown]
  - Disease progression [Not Recovered/Not Resolved]
